FAERS Safety Report 24561274 (Version 2)
Quarter: 2024Q4

REPORT INFORMATION
  Report Type: Report from Study
  Country: US (occurrence: US)
  Receive Date: 20241029
  Receipt Date: 20241127
  Transmission Date: 20250114
  Serious: Yes (Hospitalization)
  Sender: OTSUKA
  Company Number: US-OTSUKA-2024_023836

PATIENT
  Sex: Female

DRUGS (1)
  1. TOLVAPTAN [Suspect]
     Active Substance: TOLVAPTAN
     Indication: Congenital cystic kidney disease
     Dosage: UNK
     Route: 048
     Dates: start: 20240219

REACTIONS (4)
  - Blood potassium increased [Unknown]
  - Weight decreased [Unknown]
  - Fall [Unknown]
  - Wound infection [Unknown]

NARRATIVE: CASE EVENT DATE: 20240814
